FAERS Safety Report 19469963 (Version 1)
Quarter: 2021Q2

REPORT INFORMATION
  Report Type: Spontaneous
  Country: IR (occurrence: IR)
  Receive Date: 20210628
  Receipt Date: 20210628
  Transmission Date: 20210717
  Serious: Yes (Other)
  Sender: FDA-Public Use
  Company Number: IR-ADMA BIOLOGICS INC.-IR-2021ADM000038

PATIENT
  Age: 30 Year
  Sex: Female

DRUGS (4)
  1. RITUXIMAB. [Concomitant]
     Active Substance: RITUXIMAB
     Indication: PRODUCT USED FOR UNKNOWN INDICATION
     Dosage: 200 UNK, UNK
  2. IMMUNE GLOBULIN INTRAVENOUS, HUMAN ? SLRA [Suspect]
     Active Substance: HUMAN IMMUNOGLOBULIN G
     Indication: IMMUNE THROMBOCYTOPENIA
     Dosage: 80 G (20 G/DOSE) DIVIDED INTO 4 DOSES
  3. DEXAMETHASONE. [Concomitant]
     Active Substance: DEXAMETHASONE
     Indication: PRODUCT USED FOR UNKNOWN INDICATION
     Dosage: 40 MG, UNK
  4. IMMUNE GLOBULIN INTRAVENOUS, HUMAN ? SLRA [Suspect]
     Active Substance: HUMAN IMMUNOGLOBULIN G
     Dosage: 1G/KG DIVIDED INTO 4 DOSES (20 G/DOSES)

REACTIONS (2)
  - Sinus bradycardia [Recovered/Resolved]
  - Dyspnoea [Recovered/Resolved]
